FAERS Safety Report 20347055 (Version 1)
Quarter: 2022Q1

REPORT INFORMATION
  Report Type: Spontaneous
  Country: US (occurrence: US)
  Receive Date: 20220118
  Receipt Date: 20220118
  Transmission Date: 20220424
  Serious: No
  Sender: FDA-Public Use
  Company Number: US-PFIZER INC-2021619004

PATIENT
  Age: 46 Year
  Sex: Male
  Weight: 89.342 kg

DRUGS (10)
  1. INLYTA [Suspect]
     Active Substance: AXITINIB
     Indication: Renal cell carcinoma
     Dosage: 5 MG, 2X/DAY
     Route: 048
     Dates: start: 201905
  2. INLYTA [Suspect]
     Active Substance: AXITINIB
     Dosage: 3 MG
     Route: 048
  3. FISH OIL [Concomitant]
     Active Substance: FISH OIL
  4. AZELASTINE HCL IWAKI [Concomitant]
  5. BAVENCIO [Concomitant]
     Active Substance: AVELUMAB
  6. ZYRTEC [Concomitant]
     Active Substance: CETIRIZINE HYDROCHLORIDE
  7. NEXIUM [Concomitant]
     Active Substance: ESOMEPRAZOLE MAGNESIUM
  8. SINGULAIR [Concomitant]
     Active Substance: MONTELUKAST SODIUM
  9. LISINOPRIL [Concomitant]
     Active Substance: LISINOPRIL
  10. FLONASE ALLERGY RELIEF [Concomitant]
     Active Substance: FLUTICASONE PROPIONATE

REACTIONS (2)
  - Diarrhoea [Unknown]
  - Product dose omission issue [Unknown]
